FAERS Safety Report 5292543-6 (Version None)
Quarter: 2007Q2

REPORT INFORMATION
  Report Type: 
  Country: None (occurrence: None)
  Receive Date: 20070403
  Receipt Date: 20070319
  Transmission Date: 20071010
  Serious: Yes (Life-Threatening)
  Sender: FDA-Public Use
  Company Number: MPS1-10673

PATIENT
  Age: 5 Year
  Sex: Male

DRUGS (3)
  1. ALDURAZYME [Suspect]
     Indication: MUCOPOLYSACCHARIDOSIS I
     Dosage: 8.7 MG QWK IV
     Route: 030
     Dates: start: 20030604
  2. HYDROCORTISONE [Concomitant]
  3. BENADRYL [Concomitant]

REACTIONS (16)
  - ABDOMINAL PAIN [None]
  - BLOOD PRESSURE DIASTOLIC DECREASED [None]
  - COUGH [None]
  - DYSPNOEA [None]
  - EYE SWELLING [None]
  - FACE OEDEMA [None]
  - GENERALISED OEDEMA [None]
  - INFUSION RELATED REACTION [None]
  - OXYGEN SATURATION DECREASED [None]
  - PRURITUS [None]
  - RASH [None]
  - RESPIRATORY RATE INCREASED [None]
  - SWOLLEN TONGUE [None]
  - URTICARIA [None]
  - VOMITING [None]
  - WHEEZING [None]
